FAERS Safety Report 15247563 (Version 2)
Quarter: 2018Q4

REPORT INFORMATION
  Report Type: Spontaneous
  Country: US (occurrence: US)
  Receive Date: 20180807
  Receipt Date: 20181127
  Transmission Date: 20190204
  Serious: No
  Sender: FDA-Public Use
  Company Number: US-ELI_LILLY_AND_COMPANY-US201807015192

PATIENT
  Age: 65 Year
  Sex: Male

DRUGS (7)
  1. BASAGLAR [Suspect]
     Active Substance: INSULIN GLARGINE
     Indication: TYPE 1 DIABETES MELLITUS
     Dosage: 10 U, UNKNOWN
     Route: 058
     Dates: start: 20180514
  2. BASAGLAR [Suspect]
     Active Substance: INSULIN GLARGINE
     Dosage: UNK, UNKNOWN
     Route: 058
  3. GLIPIZIDE. [Concomitant]
     Active Substance: GLIPIZIDE
     Indication: PRODUCT USED FOR UNKNOWN INDICATION
     Dosage: 20 MG, UNKNOWN
  4. BASAGLAR [Suspect]
     Active Substance: INSULIN GLARGINE
     Dosage: 35 U, DAILY
     Route: 058
  5. JANUVIA [Suspect]
     Active Substance: SITAGLIPTIN PHOSPHATE
     Indication: DIABETES MELLITUS
     Dosage: UNK UNK, UNKNOWN
     Route: 065
  6. INVOKANA [Suspect]
     Active Substance: CANAGLIFLOZIN
     Indication: DIABETES MELLITUS
     Dosage: UNK UNK, UNKNOWN
     Route: 065
  7. METFORMIN [Suspect]
     Active Substance: METFORMIN HYDROCHLORIDE
     Indication: DIABETES MELLITUS
     Dosage: 1000 MG, DAILY
     Route: 065

REACTIONS (4)
  - Blood glucose increased [Recovering/Resolving]
  - Drug ineffective [Unknown]
  - Accidental underdose [Unknown]
  - Product dose omission [Unknown]

NARRATIVE: CASE EVENT DATE: 20180729
